FAERS Safety Report 17254690 (Version 4)
Quarter: 2020Q1

REPORT INFORMATION
  Report Type: Report from Study
  Country: US (occurrence: US)
  Receive Date: 20200109
  Receipt Date: 20200224
  Transmission Date: 20200409
  Serious: Yes (Hospitalization)
  Sender: FDA-Public Use
  Company Number: US-ACTELION-A-US2018-176291

PATIENT
  Age: 71 Year
  Sex: Female

DRUGS (2)
  1. OPSUMIT [Suspect]
     Active Substance: MACITENTAN
     Indication: PULMONARY ARTERIAL HYPERTENSION
     Dosage: 10 MG, QD
     Route: 048
     Dates: start: 20180416, end: 20200116
  2. IRON [Concomitant]
     Active Substance: IRON

REACTIONS (10)
  - Diarrhoea [Unknown]
  - Viral upper respiratory tract infection [Unknown]
  - Gastric disorder [Unknown]
  - Iron deficiency anaemia [Recovering/Resolving]
  - Hospitalisation [Unknown]
  - Condition aggravated [Recovering/Resolving]
  - Sinusitis [Unknown]
  - Oedema peripheral [Unknown]
  - Haemoglobin decreased [Recovering/Resolving]
  - Fatigue [Not Recovered/Not Resolved]

NARRATIVE: CASE EVENT DATE: 20190823
